FAERS Safety Report 7901693-4 (Version None)
Quarter: 2011Q4

REPORT INFORMATION
  Report Type: 
  Country: None (occurrence: None)
  Receive Date: 20111108
  Receipt Date: 20111020
  Transmission Date: 20120403
  Serious: Yes (Disabling)
  Sender: FDA-Public Use
  Company Number: GR-B.I. PHARMACEUTICALS,INC./RIDGEFIELD-2011-EU-00052GB

PATIENT
  Sex: Male

DRUGS (4)
  1. PRADAXA [Suspect]
     Route: 048
     Dates: start: 20111003, end: 20111015
  2. SINTROM [Concomitant]
     Indication: ATRIAL FIBRILLATION
     Dates: end: 20110901
  3. PRADAXA [Suspect]
     Indication: ATRIAL FIBRILLATION
     Dosage: 220 MG
     Route: 048
     Dates: start: 20110923, end: 20111001
  4. DANELIP [Concomitant]
     Indication: HYPERLIPIDAEMIA
     Dosage: 20 MG
     Dates: start: 20100501

REACTIONS (5)
  - RETINAL VASCULAR THROMBOSIS [None]
  - VISION BLURRED [None]
  - EYELID OEDEMA [None]
  - OPTIC ISCHAEMIC NEUROPATHY [None]
  - BLINDNESS UNILATERAL [None]
